FAERS Safety Report 12624370 (Version 2)
Quarter: 2016Q3

REPORT INFORMATION
  Report Type: Spontaneous
  Country: PL (occurrence: PL)
  Receive Date: 20160805
  Receipt Date: 20160815
  Transmission Date: 20161109
  Serious: Yes (Hospitalization, Other)
  Sender: FDA-Public Use
  Company Number: PL-ACTELION-A-CH2016-138949

PATIENT
  Age: 41 Year
  Sex: Female
  Weight: 54.2 kg

DRUGS (4)
  1. MYCOPHENOLATE MOFETIL. [Concomitant]
     Active Substance: MYCOPHENOLATE MOFETIL
     Indication: AUTOIMMUNE HEPATITIS
     Dosage: 500 MG, UNK
     Route: 048
     Dates: start: 20160322, end: 20160603
  2. REVATIO [Concomitant]
     Active Substance: SILDENAFIL CITRATE
     Indication: PULMONARY ARTERIAL HYPERTENSION
     Dosage: 20 MG, TID
     Route: 048
     Dates: start: 20160317
  3. OPSUMIT [Suspect]
     Active Substance: MACITENTAN
     Indication: PULMONARY ARTERIAL HYPERTENSION
     Dosage: 10 MG, OD
     Route: 048
     Dates: start: 20160317, end: 20160603
  4. PARACETAMOL [Concomitant]
     Active Substance: ACETAMINOPHEN
     Indication: HEADACHE
     Dosage: 1-2 TABLETS PER DAY

REACTIONS (9)
  - Gamma-glutamyltransferase increased [Recovered/Resolved]
  - Blood immunoglobulin G increased [Recovered/Resolved]
  - Blood bilirubin increased [Recovered/Resolved]
  - Aspartate aminotransferase increased [Recovered/Resolved]
  - Transaminases increased [Recovered/Resolved]
  - Headache [Recovered/Resolved]
  - Autoimmune hepatitis [Recovered/Resolved]
  - Nausea [Recovered/Resolved]
  - Alanine aminotransferase increased [Recovered/Resolved]

NARRATIVE: CASE EVENT DATE: 20160516
